FAERS Safety Report 5447920-7 (Version None)
Quarter: 2007Q3

REPORT INFORMATION
  Report Type: 
  Country: None (occurrence: None)
  Receive Date: 20070910
  Receipt Date: 20070829
  Transmission Date: 20080115
  Serious: Yes (Other)
  Sender: FDA-Public Use
  Company Number: GB-PFIZER INC-2007072341

PATIENT
  Age: 53 Year
  Sex: Female

DRUGS (3)
  1. CHAMPIX [Suspect]
     Indication: SMOKING CESSATION THERAPY
     Route: 048
     Dates: start: 20070716, end: 20070716
  2. ESTRADIOL VALERATE [Concomitant]
     Route: 048
  3. ZOLPIDEM TARTRATE [Concomitant]
     Route: 048

REACTIONS (5)
  - CHEST PAIN [None]
  - ERYTHEMA [None]
  - PHARYNGEAL OEDEMA [None]
  - RASH GENERALISED [None]
  - RASH PRURITIC [None]
